FAERS Safety Report 6562882-7 (Version None)
Quarter: 2010Q1

REPORT INFORMATION
  Report Type: 
  Country: None (occurrence: None)
  Receive Date: 20100130
  Receipt Date: 20091130
  Transmission Date: 20100710
  Serious: Yes (Hospitalization, Other)
  Sender: FDA-Public Use
  Company Number: US-ABBOTT-09P-163-0611178-00

PATIENT
  Sex: Female
  Weight: 56.75 kg

DRUGS (4)
  1. HUMIRA [Suspect]
     Indication: COLITIS ULCERATIVE
     Dates: start: 20090901, end: 20090901
  2. HUMIRA [Suspect]
     Dates: start: 20091001, end: 20091001
  3. BENTYL [Concomitant]
     Indication: COLITIS ULCERATIVE
  4. LIALDA [Concomitant]
     Indication: COLITIS ULCERATIVE
     Dosage: 4.8 GRAMS A DAY

REACTIONS (2)
  - ANTIBIOTIC RESISTANT STAPHYLOCOCCUS TEST POSITIVE [None]
  - PYREXIA [None]
